FAERS Safety Report 6339868-0 (Version None)
Quarter: 2009Q3

REPORT INFORMATION
  Report Type: 
  Country: None (occurrence: None)
  Receive Date: 20090903
  Receipt Date: 20090824
  Transmission Date: 20100115
  Serious: Yes (Other)
  Sender: FDA-Public Use
  Company Number: CN-PFIZER INC-2009260380

PATIENT

DRUGS (1)
  1. ZITHROMAX [Suspect]
     Dosage: 500 MG/ 250 ML
     Route: 042
     Dates: start: 20090823

REACTIONS (2)
  - SHOCK [None]
  - URINARY INCONTINENCE [None]
